FAERS Safety Report 17117418 (Version 1)
Quarter: 2019Q4

REPORT INFORMATION
  Report Type: Spontaneous
  Country: HU (occurrence: HU)
  Receive Date: 20191205
  Receipt Date: 20191205
  Transmission Date: 20200122
  Serious: Yes (Other)
  Sender: FDA-Public Use
  Company Number: HU-ASTRAZENECA-2019SF71612

PATIENT
  Age: 67 Year
  Sex: Female

DRUGS (2)
  1. OLAPARIB. [Suspect]
     Active Substance: OLAPARIB
     Indication: OVARIAN CANCER
     Route: 048
     Dates: start: 201606
  2. OLAPARIB. [Suspect]
     Active Substance: OLAPARIB
     Indication: OVARIAN CANCER
     Dosage: 2X200 MG
     Route: 048
     Dates: start: 20160916, end: 201902

REACTIONS (2)
  - Malignant neoplasm progression [Unknown]
  - Renal impairment [Unknown]

NARRATIVE: CASE EVENT DATE: 20160916
